FAERS Safety Report 9418067 (Version 2)
Quarter: 2013Q3

REPORT INFORMATION
  Report Type: Spontaneous
  Country: US (occurrence: US)
  Receive Date: 20130724
  Receipt Date: 20130726
  Transmission Date: 20140515
  Serious: Yes (Other)
  Sender: FDA-Public Use
  Company Number: US-B.I. PHARMACEUTICALS,INC./RIDGEFIELD-2013-BI-21357BP

PATIENT
  Age: 77 Year
  Sex: Male

DRUGS (10)
  1. PRADAXA [Suspect]
     Indication: ATRIAL FIBRILLATION
     Dosage: 150 MG
     Route: 048
     Dates: start: 2012
  2. SPIRIVA [Suspect]
     Indication: CHRONIC OBSTRUCTIVE PULMONARY DISEASE
     Dosage: 18 MCG
     Route: 055
     Dates: start: 2011
  3. PERFOROMIST [Concomitant]
     Route: 055
  4. BUDESONIDE [Concomitant]
     Route: 055
  5. DILTIAZEM [Concomitant]
     Route: 048
  6. DIGOXIN [Concomitant]
     Dosage: 0.25 MG
     Route: 048
  7. ALBUTEROL NEBULIZER [Concomitant]
     Route: 055
  8. CRESTOR [Concomitant]
     Indication: BLOOD CHOLESTEROL INCREASED
     Dosage: 10 MG
     Route: 048
  9. NEXIUM [Concomitant]
     Indication: DYSPEPSIA
     Route: 048
  10. HYDRALAZINE [Concomitant]
     Indication: HYPERTENSION
     Route: 048

REACTIONS (5)
  - Renal cancer [Not Recovered/Not Resolved]
  - Bladder cancer [Not Recovered/Not Resolved]
  - Drug ineffective [Recovered/Resolved]
  - Product quality issue [Unknown]
  - Product quality issue [Unknown]
